FAERS Safety Report 22275946 (Version 1)
Quarter: 2023Q2

REPORT INFORMATION
  Report Type: Spontaneous
  Country: US (occurrence: None)
  Receive Date: 20230501
  Receipt Date: 20230501
  Transmission Date: 20230721
  Serious: Yes (Other)
  Sender: FDA-Public Use
  Company Number: None

PATIENT
  Age: 55 Year
  Sex: Male
  Weight: 144 kg

DRUGS (9)
  1. VRAYLAR [Suspect]
     Active Substance: CARIPRAZINE
     Dates: start: 20230420, end: 20230424
  2. HYDROCODONE [Concomitant]
     Active Substance: HYDROCODONE
  3. ROBAXIN [Concomitant]
     Active Substance: METHOCARBAMOL
  4. LYRICA [Concomitant]
     Active Substance: PREGABALIN
  5. ATORVASTATIN [Concomitant]
     Active Substance: ATORVASTATIN
  6. Metoprolol Protonix [Concomitant]
  7. DESVENLAFAXINE [Concomitant]
     Active Substance: DESVENLAFAXINE
  8. SENNA [Concomitant]
     Active Substance: SENNA LEAF\SENNOSIDES\SENNOSIDES A AND B
  9. BENADRYL [Concomitant]
     Active Substance: DIPHENHYDRAMINE HYDROCHLORIDE

REACTIONS (5)
  - Hallucination [None]
  - Paranoia [None]
  - Hallucination, visual [None]
  - Dyskinesia [None]
  - Memory impairment [None]

NARRATIVE: CASE EVENT DATE: 20230420
